FAERS Safety Report 7723942-8 (Version None)
Quarter: 2011Q3

REPORT INFORMATION
  Report Type: 
  Country: None (occurrence: None)
  Receive Date: 20110901
  Receipt Date: 20110822
  Transmission Date: 20111222
  Serious: Yes (Death, Hospitalization, Other)
  Sender: FDA-Public Use
  Company Number: US-ELI_LILLY_AND_COMPANY-US201107004593

PATIENT
  Age: 92 Year
  Sex: Male
  Weight: 50.3 kg

DRUGS (6)
  1. LEVOTHYROXINE SODIUM [Concomitant]
  2. FORTEO [Suspect]
     Indication: OSTEOPOROSIS
     Dosage: 20 UG, QD
     Route: 065
     Dates: start: 20100101, end: 20110501
  3. FERROUS SULFATE TAB [Concomitant]
  4. VITAMIN B-12 [Concomitant]
     Dosage: UNK, MONTHLY (1/M)
     Route: 030
  5. OS-CAL [Concomitant]
  6. COUMADIN [Concomitant]

REACTIONS (9)
  - CORONARY ARTERY DISEASE [None]
  - PERNICIOUS ANAEMIA [None]
  - OSTEOPOROSIS [None]
  - DEHYDRATION [None]
  - CARDIAC FAILURE CONGESTIVE [None]
  - RENAL FAILURE CHRONIC [None]
  - BLOOD POTASSIUM INCREASED [None]
  - OSTEOARTHRITIS [None]
  - ANURIA [None]
